FAERS Safety Report 5104204-4 (Version None)
Quarter: 2006Q3

REPORT INFORMATION
  Report Type: 
  Country: None (occurrence: None)
  Receive Date: 20060911
  Receipt Date: 20060825
  Transmission Date: 20061208
  Serious: Yes (Death, Other)
  Sender: FDA-Public Use
  Company Number: ACO_0261_2006

PATIENT
  Sex: Female

DRUGS (3)
  1. ZANAFLEX [Suspect]
     Indication: MULTIPLE SCLEROSIS
     Dosage: 1 DF QDAY PO
     Route: 048
     Dates: start: 19990522, end: 19990610
  2. AMITRIPTYLINE HCL [Concomitant]
  3. BACLOFEN [Concomitant]

REACTIONS (4)
  - ASPIRATION [None]
  - HYPOTENSION [None]
  - MENDELSON'S SYNDROME [None]
  - SYNCOPE [None]
